FAERS Safety Report 12337484 (Version 3)
Quarter: 2016Q4

REPORT INFORMATION
  Report Type: Spontaneous
  Country: US (occurrence: US)
  Receive Date: 20160505
  Receipt Date: 20161114
  Transmission Date: 20170207
  Serious: Yes (Other)
  Sender: FDA-Public Use
  Company Number: US-CELGENEUS-USA-2016046535

PATIENT
  Age: 67 Year
  Sex: Male
  Weight: 88.5 kg

DRUGS (35)
  1. DEXAMETHASONE. [Suspect]
     Active Substance: DEXAMETHASONE
     Route: 065
     Dates: end: 20111219
  2. DEXAMETHASONE. [Suspect]
     Active Substance: DEXAMETHASONE
     Route: 065
     Dates: start: 20111227, end: 201202
  3. DEXAMETHASONE. [Suspect]
     Active Substance: DEXAMETHASONE
     Route: 065
     Dates: start: 201211, end: 20141027
  4. ADVIL [Concomitant]
     Active Substance: IBUPROFEN
     Indication: MUSCULOSKELETAL PAIN
     Route: 048
     Dates: start: 201411
  5. AZITHROMYCIN ANHYDROUS. [Concomitant]
     Active Substance: AZITHROMYCIN ANHYDROUS
     Indication: UPPER RESPIRATORY TRACT INFECTION
     Route: 048
     Dates: start: 20160107, end: 20160109
  6. ACY-1215 [Suspect]
     Active Substance: RICOLINOSTAT
     Indication: PLASMA CELL MYELOMA
     Route: 048
     Dates: start: 20141112, end: 20160120
  7. REVLIMID [Suspect]
     Active Substance: LENALIDOMIDE
     Indication: PLASMA CELL MYELOMA
     Route: 048
     Dates: start: 201002, end: 201010
  8. PROCHLORPERAZINE. [Concomitant]
     Active Substance: PROCHLORPERAZINE
     Indication: NAUSEA
     Dosage: 1 CAPSULE
     Route: 048
     Dates: start: 20141112
  9. POMALYST [Suspect]
     Active Substance: POMALIDOMIDE
     Indication: PLASMA CELL MYELOMA
     Dosage: 4 MILLIGRAM
     Route: 048
     Dates: start: 20141112, end: 20160120
  10. DEXAMETHASONE. [Suspect]
     Active Substance: DEXAMETHASONE
     Route: 048
     Dates: start: 20141112
  11. REVLIMID [Suspect]
     Active Substance: LENALIDOMIDE
     Route: 048
     Dates: start: 201211, end: 20141027
  12. RING RELIEF [Concomitant]
     Active Substance: ALLYLTHIOUREA\ARNICA MONTANA\CALCIUM SULFIDE\HYPERICUM PERFORATUM\LYCOPODIUM CLAVATUM SPORE\MERCURIUS SOLUBILIS\SALICYLIC ACID\SILICON DIOXIDE
     Indication: TINNITUS
     Route: 048
     Dates: start: 20150120
  13. BENADRYL [Concomitant]
     Active Substance: DIPHENHYDRAMINE HYDROCHLORIDE
     Indication: INSOMNIA
     Route: 048
     Dates: start: 20150108
  14. LEVAQUIN [Concomitant]
     Active Substance: LEVOFLOXACIN
     Indication: GASTROENTERITIS
     Dosage: 1000 MILLIGRAM
     Route: 048
     Dates: start: 20150311, end: 20150320
  15. ZOLOFT [Concomitant]
     Active Substance: SERTRALINE HYDROCHLORIDE
     Indication: ANXIETY
     Dosage: 500 MILLIGRAM
     Route: 048
     Dates: start: 20130606
  16. POLYSPORIN [Concomitant]
     Active Substance: BACITRACIN ZINC\POLYMYXIN B SULFATE
     Indication: LOCALISED INFECTION
     Route: 061
     Dates: start: 20150609, end: 20150611
  17. DEXAMETHASONE. [Suspect]
     Active Substance: DEXAMETHASONE
     Indication: PLASMA CELL MYELOMA
     Route: 065
     Dates: start: 201002, end: 201010
  18. REVLIMID [Suspect]
     Active Substance: LENALIDOMIDE
     Route: 048
     Dates: start: 20111227, end: 201202
  19. ASPIRIN. [Concomitant]
     Active Substance: ASPIRIN
     Indication: THROMBOSIS PROPHYLAXIS
     Dosage: 50 MILLIGRAM
     Route: 048
     Dates: start: 2011, end: 20141111
  20. MULTIVITAMINS [Concomitant]
     Active Substance: VITAMINS
     Indication: NUTRITIONAL SUPPLEMENTATION
     Dosage: 4 MILLIGRAM
     Route: 048
     Dates: start: 20100527
  21. DEXAMETHASONE. [Suspect]
     Active Substance: DEXAMETHASONE
     Dosage: 3 MILLIGRAM
     Route: 048
     Dates: end: 20160114
  22. REVLIMID [Suspect]
     Active Substance: LENALIDOMIDE
     Route: 048
     Dates: start: 201011, end: 20111219
  23. IMODIUM [Concomitant]
     Active Substance: LOPERAMIDE HYDROCHLORIDE
     Indication: DIARRHOEA
     Dosage: 1 TABLET
     Route: 048
     Dates: start: 2011
  24. LUNESTA [Concomitant]
     Active Substance: ESZOPICLONE
     Indication: INSOMNIA
     Dosage: 150 MILLIGRAM
     Route: 048
     Dates: start: 20101029, end: 20150107
  25. INFLUENZA [Concomitant]
     Active Substance: INFLUENZA VIRUS VACCINE
     Indication: ANTIVIRAL PROPHYLAXIS
     Dosage: 0.5 CC
     Route: 030
     Dates: start: 20151015, end: 20151015
  26. ACY-1215 [Suspect]
     Active Substance: RICOLINOSTAT
     Dosage: 500 MILLIGRAM
     Route: 048
     Dates: start: 20141112, end: 20160120
  27. ASPIRIN. [Concomitant]
     Active Substance: ASPIRIN
     Dosage: 1 TABLET
     Route: 048
     Dates: start: 20151112
  28. BIFIDOBACTERIUM LACTOBACILLUS [Concomitant]
     Indication: NUTRITIONAL SUPPLEMENTATION
     Route: 048
     Dates: start: 20140710
  29. RING RELIEF [Concomitant]
     Active Substance: ALLYLTHIOUREA\ARNICA MONTANA\CALCIUM SULFIDE\HYPERICUM PERFORATUM\LYCOPODIUM CLAVATUM SPORE\MERCURIUS SOLUBILIS\SALICYLIC ACID\SILICON DIOXIDE
     Route: 065
     Dates: start: 20150120
  30. KEFLEX [Concomitant]
     Active Substance: CEPHALEXIN
     Indication: LOCALISED INFECTION
     Route: 048
     Dates: start: 20150612, end: 20150618
  31. BACTRIM DS [Concomitant]
     Active Substance: SULFAMETHOXAZOLE\TRIMETHOPRIM
     Indication: INFECTION PROPHYLAXIS
     Dosage: 40 MILLIGRAM
     Route: 048
     Dates: start: 2011
  32. VALACYCLOVIR [Concomitant]
     Active Substance: VALACYCLOVIR HYDROCHLORIDE
     Indication: ANTIVIRAL PROPHYLAXIS
     Dosage: 1 TABLET
     Route: 048
     Dates: start: 20110606
  33. PROCHLORPERAZINE. [Concomitant]
     Active Substance: PROCHLORPERAZINE
     Indication: VOMITING
  34. ZOLEDRONIC ACID [Concomitant]
     Active Substance: ZOLEDRONIC ACID
     Indication: BONE DISORDER
     Dosage: 8 TABLET
     Route: 041
     Dates: start: 20121025
  35. TAMIFLU [Concomitant]
     Active Substance: OSELTAMIVIR PHOSPHATE
     Indication: GASTROENTERITIS
     Dosage: 3 DOSAGE FORMS
     Route: 048
     Dates: start: 20150311, end: 20150320

REACTIONS (1)
  - Squamous cell carcinoma of skin [Recovered/Resolved]

NARRATIVE: CASE EVENT DATE: 20160108
